FAERS Safety Report 25619056 (Version 1)
Quarter: 2025Q3

REPORT INFORMATION
  Report Type: Report from Study
  Country: US (occurrence: US)
  Receive Date: 20250729
  Receipt Date: 20250729
  Transmission Date: 20251020
  Serious: Yes (Other)
  Sender: NOVO NORDISK
  Company Number: US-NOVOPROD-1485096

PATIENT
  Age: 69 Year
  Sex: Male

DRUGS (3)
  1. NOVOLOG [Suspect]
     Active Substance: INSULIN ASPART
     Indication: Type 1 diabetes mellitus
     Route: 058
     Dates: start: 20200101, end: 20250101
  2. INSULIN ASPART [Suspect]
     Active Substance: INSULIN ASPART
     Indication: Type 1 diabetes mellitus
     Dosage: 89 IU, QD
     Route: 058
     Dates: start: 20250101
  3. LANTUS [Concomitant]
     Active Substance: INSULIN GLARGINE
     Indication: Type 1 diabetes mellitus

REACTIONS (5)
  - Neuropathy peripheral [Unknown]
  - Diabetic retinopathy [Unknown]
  - Feeling abnormal [Unknown]
  - Arthritis [Unknown]
  - Visual impairment [Unknown]

NARRATIVE: CASE EVENT DATE: 20200101
